FAERS Safety Report 8079146-5 (Version None)
Quarter: 2012Q1

REPORT INFORMATION
  Report Type: 
  Country: None (occurrence: None)
  Receive Date: 20120128
  Receipt Date: 20110818
  Transmission Date: 20120608
  Serious: No
  Sender: FDA-Public Use
  Company Number: US-ABBOTT-11P-163-0848057-00

PATIENT
  Sex: Female

DRUGS (15)
  1. AMBIEN [Concomitant]
     Indication: INSOMNIA
     Dosage: 5 MG QPM
     Route: 048
  2. CYMBALTA [Concomitant]
     Indication: NEUROPATHY PERIPHERAL
     Route: 048
  3. ASCORBIC ACID [Concomitant]
     Indication: VITAMIN SUPPLEMENTATION
     Route: 048
  4. ALPHA LIPOIC ACID [Concomitant]
     Indication: NEUROPATHY PERIPHERAL
     Route: 048
  5. ASPIRIN [Concomitant]
     Indication: CARDIOVASCULAR EVENT PROPHYLAXIS
     Route: 048
  6. MULTI-VITAMIN [Concomitant]
     Indication: SUPPLEMENTATION THERAPY
     Route: 048
  7. VITAMIN D [Concomitant]
     Indication: PRODUCT USED FOR UNKNOWN INDICATION
     Route: 048
  8. CALCIUM [Concomitant]
     Indication: OSTEOPENIA
     Route: 048
  9. FOLIC ACID [Concomitant]
     Indication: PRODUCT USED FOR UNKNOWN INDICATION
     Route: 048
  10. AMLODIPINE [Concomitant]
     Indication: BLOOD PRESSURE
     Route: 048
  11. HYDROCHLOROTHIAZIDE [Concomitant]
     Indication: BLOOD PRESSURE
     Route: 048
  12. ATORVASTATIN [Concomitant]
     Indication: BLOOD CHOLESTEROL
     Route: 048
  13. COD LIVER OIL [Concomitant]
     Indication: VITAMIN SUPPLEMENTATION
     Route: 048
  14. HUMIRA [Suspect]
     Indication: PSORIASIS
     Dates: start: 20090201, end: 20100201
  15. MIRAPEX [Concomitant]
     Indication: RESTLESS LEGS SYNDROME
     Route: 048

REACTIONS (8)
  - SINUS DISORDER [None]
  - PARANASAL SINUS HYPERSECRETION [None]
  - PSORIASIS [None]
  - IRRITABLE BOWEL SYNDROME [None]
  - INJECTION SITE PAIN [None]
  - COUGH [None]
  - BLOOD VISCOSITY INCREASED [None]
  - OSTEOPENIA [None]
